FAERS Safety Report 18089326 (Version 4)
Quarter: 2020Q4

REPORT INFORMATION
  Report Type: Spontaneous
  Country: US (occurrence: US)
  Receive Date: 20200729
  Receipt Date: 20201015
  Transmission Date: 20210113
  Serious: No
  Sender: FDA-Public Use
  Company Number: US-ALLERGAN-2026073US

PATIENT
  Age: 72 Year
  Sex: Female

DRUGS (1)
  1. DURYSTA [Suspect]
     Active Substance: BIMATOPROST
     Indication: INTRAOCULAR PRESSURE INCREASED
     Dosage: 10 ?G, SINGLE
     Route: 031
     Dates: start: 20200701, end: 20200701

REACTIONS (2)
  - Product quality issue [Unknown]
  - Complication of device insertion [Unknown]
